FAERS Safety Report 8496451-9 (Version None)
Quarter: 2012Q3

REPORT INFORMATION
  Report Type: 
  Country: None (occurrence: None)
  Receive Date: 20120709
  Receipt Date: 20120628
  Transmission Date: 20120928
  Serious: Yes (Other)
  Sender: FDA-Public Use
  Company Number: US-BRISTOL-MYERS SQUIBB COMPANY-16484636

PATIENT
  Age: 60 Year
  Sex: Female

DRUGS (2)
  1. ERBITUX [Suspect]
     Indication: BREAST CANCER
     Dosage: THERAPY DT:21MAR,27MAR,10APR12
     Route: 042
     Dates: start: 20120313
  2. DECADRON [Suspect]

REACTIONS (20)
  - ASTHMA [None]
  - MUSCLE TIGHTNESS [None]
  - INSOMNIA [None]
  - TONGUE DISORDER [None]
  - STOMATITIS [None]
  - BONE PAIN [None]
  - DRY SKIN [None]
  - VISION BLURRED [None]
  - MYALGIA [None]
  - ENERGY INCREASED [None]
  - ERYTHEMA [None]
  - PRURITUS [None]
  - HEADACHE [None]
  - DIARRHOEA [None]
  - DYSPHAGIA [None]
  - LOWER RESPIRATORY TRACT INFECTION [None]
  - URTICARIA [None]
  - SKIN DISORDER [None]
  - GASTRITIS [None]
  - TINNITUS [None]
